FAERS Safety Report 23776593 (Version 1)
Quarter: 2024Q2

REPORT INFORMATION
  Report Type: Spontaneous
  Country: US (occurrence: US)
  Receive Date: 20240424
  Receipt Date: 20240424
  Transmission Date: 20240716
  Serious: No
  Sender: FDA-Public Use
  Company Number: US-UCBSA-2024003461

PATIENT
  Sex: Female
  Weight: 105.67 kg

DRUGS (1)
  1. BIMZELX [Suspect]
     Active Substance: BIMEKIZUMAB-BKZX
     Indication: Psoriasis
     Dosage: 320 MILLIGRAM (2 PENS), EV 4 WEEKS (0, 4, 8, 12, AND 16)
     Route: 058
     Dates: start: 202311

REACTIONS (1)
  - Constipation [Not Recovered/Not Resolved]
